FAERS Safety Report 8158522-6 (Version None)
Quarter: 2012Q1

REPORT INFORMATION
  Report Type: 
  Country: None (occurrence: None)
  Receive Date: 20120223
  Receipt Date: 20120217
  Transmission Date: 20120608
  Serious: No
  Sender: FDA-Public Use
  Company Number: US-PFIZER INC-2012025370

PATIENT
  Sex: Female
  Weight: 46.712 kg

DRUGS (3)
  1. TEMAZEPAM [Concomitant]
     Indication: SLEEP DISORDER
     Dosage: 20 MG, UNK
  2. CHANTIX [Suspect]
     Dosage: UNK
     Dates: start: 20060101, end: 20060101
  3. ACTONEL WITH CALCIUM (COPACKAGED) [Concomitant]
     Dosage: UNK

REACTIONS (1)
  - BLOOD CHOLESTEROL INCREASED [None]
